FAERS Safety Report 17802520 (Version 1)
Quarter: 2020Q2

REPORT INFORMATION
  Report Type: Spontaneous
  Country: US (occurrence: US)
  Receive Date: 20200518
  Receipt Date: 20200518
  Transmission Date: 20200714
  Serious: No
  Sender: FDA-Public Use
  Company Number: None

PATIENT
  Age: 56 Year
  Sex: Female
  Weight: 59 kg

DRUGS (2)
  1. OPENBIOME FECAL TRANSPLATE 250ML [Suspect]
     Active Substance: FECAL MICROBIOTA
     Indication: CLOSTRIDIUM DIFFICILE COLITIS
     Route: 054
     Dates: start: 20200211, end: 20200211
  2. OPENBIOME FECAL TRANSPLATE 250ML [Suspect]
     Active Substance: FECAL MICROBIOTA
     Indication: CLOSTRIDIUM DIFFICILE COLITIS
     Route: 054
     Dates: start: 20200304, end: 20200304

REACTIONS (1)
  - Product contamination [None]

NARRATIVE: CASE EVENT DATE: 20200211
